FAERS Safety Report 16905060 (Version 5)
Quarter: 2020Q1

REPORT INFORMATION
  Report Type: Report from Study
  Country: US (occurrence: US)
  Receive Date: 20191010
  Receipt Date: 20200328
  Transmission Date: 20200409
  Serious: Yes (Other)
  Sender: FDA-Public Use
  Company Number: US-UCBSA-2019041985

PATIENT
  Age: 58 Year
  Sex: Female
  Weight: 68 kg

DRUGS (3)
  1. LACOSAMIDE. [Suspect]
     Active Substance: LACOSAMIDE
     Dosage: 200 MG MORNING AND 300 MG EVENING
     Route: 048
  2. LACOSAMIDE. [Suspect]
     Active Substance: LACOSAMIDE
     Dosage: 200 MG; 1 TABLET IN THE MORNING AND 1.5 TABLET IN THE EVENING, 2X/DAY (BID)
     Route: 048
  3. LACOSAMIDE. [Suspect]
     Active Substance: LACOSAMIDE
     Indication: PARTIAL SEIZURES
     Dosage: 100 MG MORNING,150 MG QHS
     Route: 048
     Dates: start: 20181114

REACTIONS (13)
  - Eye operation [Unknown]
  - Diplopia [Unknown]
  - Urinary tract infection [Not Recovered/Not Resolved]
  - Skin discolouration [Recovered/Resolved]
  - Memory impairment [Unknown]
  - Intentional product misuse [Unknown]
  - Seizure [Not Recovered/Not Resolved]
  - Overdose [Unknown]
  - Product dose omission [Unknown]
  - Fall [Unknown]
  - Fatigue [Unknown]
  - Vertigo [Unknown]
  - Nasopharyngitis [Not Recovered/Not Resolved]

NARRATIVE: CASE EVENT DATE: 2018
